FAERS Safety Report 5930262-0 (Version None)
Quarter: 2008Q4

REPORT INFORMATION
  Report Type: 
  Country: None (occurrence: None)
  Receive Date: 20081024
  Receipt Date: 20081014
  Transmission Date: 20090506
  Serious: Yes (Hospitalization)
  Sender: FDA-Public Use
  Company Number: FR-PFIZER INC-2008088027

PATIENT
  Age: 19 Year
  Sex: Male

DRUGS (1)
  1. CHAMPIX [Suspect]

REACTIONS (5)
  - AGGRESSION [None]
  - DELIRIUM [None]
  - HALLUCINATION, AUDITORY [None]
  - MENTAL DISORDER [None]
  - PERSECUTORY DELUSION [None]
